FAERS Safety Report 6139573-X (Version None)
Quarter: 2009Q1

REPORT INFORMATION
  Report Type: 
  Country: None (occurrence: None)
  Receive Date: 20090327
  Receipt Date: 20080627
  Transmission Date: 20090719
  Serious: Yes (Hospitalization)
  Sender: FDA-Public Use
  Company Number: 080630-0000526

PATIENT
  Age: 38 Year
  Sex: Female

DRUGS (2)
  1. CHEMET [Suspect]
     Indication: METAL POISONING
  2. VICODIN [Concomitant]

REACTIONS (1)
  - ARRHYTHMIA [None]
